FAERS Safety Report 8052493-9 (Version None)
Quarter: 2012Q1

REPORT INFORMATION
  Report Type: 
  Country: None (occurrence: None)
  Receive Date: 20120118
  Receipt Date: 20120113
  Transmission Date: 20120608
  Serious: Yes (Other)
  Sender: FDA-Public Use
  Company Number: DE-PFIZER INC-2011286574

PATIENT
  Age: 61 Year
  Sex: Male
  Weight: 74.4 kg

DRUGS (2)
  1. LYRICA [Suspect]
     Dosage: 300 MG, DAILY
     Route: 048
     Dates: start: 20111029, end: 20111124
  2. LYRICA [Suspect]
     Indication: GENERALISED ANXIETY DISORDER
     Dosage: 25MG DAILY
     Route: 048
     Dates: start: 20110929, end: 20110101

REACTIONS (4)
  - ANGIOEDEMA [None]
  - SMALL CELL LUNG CANCER STAGE UNSPECIFIED [None]
  - LUNG INFECTION [None]
  - PETECHIAE [None]
